FAERS Safety Report 10089802 (Version 2)
Quarter: 2014Q2

REPORT INFORMATION
  Report Type: Spontaneous
  Country: US (occurrence: US)
  Receive Date: 20140421
  Receipt Date: 20140421
  Transmission Date: 20141212
  Serious: Yes (Hospitalization)
  Sender: FDA-Public Use
  Company Number: PHHY2014US044516

PATIENT
  Age: 59 Year
  Sex: Male

DRUGS (4)
  1. TIMOLOL [Suspect]
     Indication: EPISTAXIS
     Dosage: 3 GTT, TID
     Route: 006
  2. TIMOLOL [Suspect]
     Indication: OFF LABEL USE
  3. CHOLECALCIFEROL [Concomitant]
  4. OMEGA-3 FATTY ACIDS [Concomitant]

REACTIONS (4)
  - Bundle branch block right [Recovered/Resolved]
  - Sinus bradycardia [Recovered/Resolved]
  - Dizziness [Recovered/Resolved]
  - Incorrect route of drug administration [Unknown]
